FAERS Safety Report 9356758 (Version 6)
Quarter: 2020Q1

REPORT INFORMATION
  Report Type: Report from Study
  Country: US (occurrence: US)
  Receive Date: 20130619
  Receipt Date: 20200320
  Transmission Date: 20200409
  Serious: Yes (Congenital Anomaly, Other)
  Sender: FDA-Public Use
  Company Number: US-UCBSA-088658

PATIENT
  Age: 4 Year
  Sex: Male
  Weight: 3.4 kg

DRUGS (21)
  1. PROGESTERONE. [Concomitant]
     Active Substance: PROGESTERONE
     Indication: PREGNANCY
     Dosage: 200 MG, ONCE DAILY (QD)
     Route: 064
     Dates: start: 20120917, end: 20130430
  2. VICKS DAYQUIL [Concomitant]
     Active Substance: DEXTROMETHORPHAN HYDROBROMIDE\GUAIFENESIN
     Dosage: DOSE : 6 PILLS
     Route: 064
     Dates: start: 20121217, end: 20121219
  3. CLINDAMYCIN. [Concomitant]
     Active Substance: CLINDAMYCIN
     Indication: ACNE
     Dosage: FREQUENCY : 3.5  WEEKLY
     Route: 064
     Dates: start: 20121028, end: 20121125
  4. CORDRAN [Concomitant]
     Active Substance: FLURANDRENOLIDE
     Indication: PITYRIASIS
     Dosage: UNK UNK, ONCE DAILY (QD)
     Route: 064
     Dates: start: 20130218, end: 20130222
  5. LAMISIL [Concomitant]
     Active Substance: TERBINAFINE HYDROCHLORIDE
     Indication: PITYRIASIS
     Dosage: UNK, ONCE DAILY (QD)
     Route: 064
     Dates: start: 20130211, end: 20130217
  6. CERTOLIZUMAB PEGOL RA [Suspect]
     Active Substance: CERTOLIZUMAB PEGOL
     Indication: RHEUMATOID ARTHRITIS
     Dosage: 400 MG, 2X/MONTH
     Route: 064
     Dates: start: 20120811, end: 20120827
  7. VICKS DAYQUIL [Concomitant]
     Active Substance: DEXTROMETHORPHAN HYDROBROMIDE\GUAIFENESIN
     Route: 064
     Dates: start: 20130131, end: 20130203
  8. VICKS NYQUIL [Concomitant]
     Active Substance: ACETAMINOPHEN\DEXTROMETHORPHAN HYDROBROMIDE\DOXYLAMINE SUCCINATE
     Indication: HYPERSENSITIVITY
     Dosage: DOSE : 2 PILLS
     Route: 064
     Dates: start: 20121217, end: 20121218
  9. CERTOLIZUMAB PEGOL RA [Suspect]
     Active Substance: CERTOLIZUMAB PEGOL
     Dosage: 200 MG, 2X/MONTH
     Route: 064
     Dates: start: 20130225, end: 20130430
  10. PRENATAL VITAMINS [Concomitant]
     Active Substance: VITAMINS
     Indication: PRODUCT USED FOR UNKNOWN INDICATION
     Dosage: DOSE : 4 PILLS
     Route: 064
     Dates: start: 20120728, end: 20130430
  11. VICKS DAYQUIL [Concomitant]
     Active Substance: DEXTROMETHORPHAN HYDROBROMIDE\GUAIFENESIN
     Dosage: DOSE : 4 PILLS
     Route: 064
     Dates: start: 20130131, end: 20130201
  12. VICKS DAYQUIL [Concomitant]
     Active Substance: DEXTROMETHORPHAN HYDROBROMIDE\GUAIFENESIN
     Dosage: DOSE : 6 PILLS
     Route: 064
     Dates: start: 20130202, end: 20130203
  13. FLU [Concomitant]
     Active Substance: INFLUENZA VIRUS VACCINE
     Indication: PRODUCT USED FOR UNKNOWN INDICATION
     Dosage: UNK
  14. VICKS DAYQUIL [Concomitant]
     Active Substance: DEXTROMETHORPHAN HYDROBROMIDE\GUAIFENESIN
     Indication: NASOPHARYNGITIS
     Dosage: DOSE : 6 PILLS
     Route: 064
     Dates: start: 20121015, end: 20121016
  15. CLOTRIMAZOLE. [Concomitant]
     Active Substance: CLOTRIMAZOLE
     Indication: PITYRIASIS
     Dosage: UNK, ONCE DAILY (QD)
     Route: 064
     Dates: start: 20130209, end: 20130210
  16. VICKS NYQUIL [Concomitant]
     Active Substance: ACETAMINOPHEN\DEXTROMETHORPHAN HYDROBROMIDE\DOXYLAMINE SUCCINATE
     Dosage: DOSE : 2 PILLS
     Route: 064
     Dates: start: 20130202, end: 20130203
  17. PEPCID AC [Concomitant]
     Active Substance: FAMOTIDINE
     Indication: DYSPEPSIA
     Dosage: DOSE : 1 PILL
     Route: 064
     Dates: start: 20130423, end: 20130429
  18. FLUZONE [Concomitant]
     Active Substance: INFLUENZA A VIRUS A/CALIFORNIA/7/2009 X-179A (H1N1) ANTIGEN (FORMALDEHYDE INACTIVATED)\INFLUENZA A VIRUS A/VICTORIA/210/2009 X-187 (H3N2) ANTIGEN (FORMALDEHYDE INACTIVATED)\INFLUENZA B VIRUS B/BRISBANE/60/2008 ANTIGEN (FORMALDEHYDE INACTIVATED)
     Indication: PRODUCT USED FOR UNKNOWN INDICATION
     Dosage: DOSE : 1 SHOT
     Route: 064
     Dates: start: 20121024, end: 20121024
  19. CERTOLIZUMAB PEGOL RA [Suspect]
     Active Substance: CERTOLIZUMAB PEGOL
     Dosage: 200 MG, 2X/MONTH
     Route: 064
     Dates: start: 20120910, end: 20130128
  20. VICKS NYQUIL [Concomitant]
     Active Substance: ACETAMINOPHEN\DEXTROMETHORPHAN HYDROBROMIDE\DOXYLAMINE SUCCINATE
     Indication: NASOPHARYNGITIS
     Dosage: DOSE : 2 PILLS
     Route: 064
     Dates: start: 20121015, end: 20121016
  21. DHA [Concomitant]
     Active Substance: DIETARY SUPPLEMENT
     Indication: PRODUCT USED FOR UNKNOWN INDICATION
     Dosage: 250 ?G, ONCE DAILY (QD)
     Route: 064
     Dates: start: 20120728, end: 20130430

REACTIONS (9)
  - Congenital hydronephrosis [Recovering/Resolving]
  - Kidney malformation [Unknown]
  - Mass [Not Recovered/Not Resolved]
  - Language disorder [Unknown]
  - Cataract [Recovered/Resolved]
  - Post procedural complication [Unknown]
  - Coloboma [Unknown]
  - Accident [Recovered/Resolved]
  - Maternal exposure before pregnancy [Unknown]

NARRATIVE: CASE EVENT DATE: 20120811
